FAERS Safety Report 26185056 (Version 1)
Quarter: 2025Q4

REPORT INFORMATION
  Report Type: Report from Study
  Country: US (occurrence: US)
  Receive Date: 20251222
  Receipt Date: 20251222
  Transmission Date: 20260117
  Serious: No
  Sender: BIOGEN
  Company Number: US-BIOGEN-2095889

PATIENT
  Sex: Male

DRUGS (1)
  1. TYSABRI [Suspect]
     Active Substance: NATALIZUMAB
     Indication: Multiple sclerosis
     Dates: start: 20201210, end: 20210611

REACTIONS (4)
  - Optic neuritis [Recovered/Resolved]
  - Seasonal allergy [Recovering/Resolving]
  - Rash [Not Recovered/Not Resolved]
  - Mite allergy [Unknown]

NARRATIVE: CASE EVENT DATE: 20251001
